FAERS Safety Report 12456308 (Version 1)
Quarter: 2016Q2

REPORT INFORMATION
  Report Type: Spontaneous
  Country: US (occurrence: US)
  Receive Date: 20160610
  Receipt Date: 20160610
  Transmission Date: 20160815
  Serious: No
  Sender: FDA-Public Use
  Company Number: US-009507513-1605USA009651

PATIENT
  Sex: Female

DRUGS (1)
  1. NEXPLANON [Suspect]
     Active Substance: ETONOGESTREL
     Dosage: 68 MG,1 ROD EVERY THREE YEARS
     Route: 059
     Dates: start: 201210, end: 20160517

REACTIONS (4)
  - No adverse event [Unknown]
  - Incorrect drug administration duration [Unknown]
  - Device breakage [Unknown]
  - Product quality issue [Unknown]
